FAERS Safety Report 23771335 (Version 1)
Quarter: 2024Q2

REPORT INFORMATION
  Report Type: Report from Study
  Country: RO (occurrence: RO)
  Receive Date: 20240423
  Receipt Date: 20240423
  Transmission Date: 20240716
  Serious: Yes (Hospitalization)
  Sender: FDA-Public Use
  Company Number: RO-AMGEN-ROUSL2024004724

PATIENT
  Age: 67 Year
  Sex: Female

DRUGS (1)
  1. VECTIBIX [Suspect]
     Active Substance: PANITUMUMAB
     Indication: Product used for unknown indication
     Dosage: UNK
     Route: 065

REACTIONS (13)
  - Pulmonary thrombosis [Unknown]
  - Asthenia [Unknown]
  - Oxygen saturation decreased [Unknown]
  - Skin wrinkling [Unknown]
  - Pustule [Unknown]
  - Skin disorder [Not Recovered/Not Resolved]
  - Pain of skin [Not Recovered/Not Resolved]
  - Dry skin [Unknown]
  - Pruritus [Unknown]
  - Erythema [Unknown]
  - Ocular discomfort [Unknown]
  - Hypoaesthesia [Unknown]
  - Onychomycosis [Unknown]

NARRATIVE: CASE EVENT DATE: 20240101
